FAERS Safety Report 13251391 (Version 1)
Quarter: 2017Q1

REPORT INFORMATION
  Report Type: Spontaneous
  Country: US (occurrence: US)
  Receive Date: 20170220
  Receipt Date: 20170220
  Transmission Date: 20170428
  Serious: No
  Sender: FDA-Public Use
  Company Number: US-BAYER-2017-030207

PATIENT
  Age: 88 Year
  Sex: Female
  Weight: 55 kg

DRUGS (1)
  1. MIRALAX [Suspect]
     Active Substance: POLYETHYLENE GLYCOL 3350
     Indication: PROPHYLAXIS
     Dosage: 1 DF, UNK
     Route: 048
     Dates: start: 201501, end: 20170123

REACTIONS (5)
  - Retching [Unknown]
  - Product use issue [Unknown]
  - Product use issue [Unknown]
  - Patient dissatisfaction with treatment [Recovered/Resolved]
  - Product use issue [Unknown]

NARRATIVE: CASE EVENT DATE: 201501
